FAERS Safety Report 7204171-3 (Version None)
Quarter: 2010Q4

REPORT INFORMATION
  Report Type: 
  Country: None (occurrence: None)
  Receive Date: 20101230
  Receipt Date: 20101101
  Transmission Date: 20110411
  Serious: Yes (Other)
  Sender: FDA-Public Use
  Company Number: US-BAYER-201026763NA

PATIENT
  Sex: Female
  Weight: 56.818 kg

DRUGS (13)
  1. YASMIN [Suspect]
     Indication: CONTRACEPTION
     Dates: start: 20050701, end: 20051201
  2. YASMIN [Suspect]
     Dates: start: 20050201, end: 20050401
  3. YAZ [Suspect]
     Indication: CONTRACEPTION
     Route: 048
     Dates: start: 20071101, end: 20080701
  4. YAZ [Suspect]
     Indication: ACNE
  5. SOTRET [Concomitant]
     Indication: ACNE
     Dosage: DAILY
  6. PHENERGAN [Concomitant]
  7. VICODIN [Concomitant]
  8. PEPCID [Concomitant]
  9. REGLAN [Concomitant]
  10. ULTRAM [Concomitant]
  11. PROTONIX [Concomitant]
     Dosage: DAILY
  12. DILAUDID [Concomitant]
     Dosage: 8 MG (DAILY DOSE), BID,
  13. ACCUTANE [Concomitant]

REACTIONS (4)
  - ABDOMINAL PAIN [None]
  - CHOLELITHIASIS [None]
  - NAUSEA [None]
  - VOMITING [None]
